FAERS Safety Report 12838892 (Version 3)
Quarter: 2016Q4

REPORT INFORMATION
  Report Type: Spontaneous
  Country: US (occurrence: US)
  Receive Date: 20161012
  Receipt Date: 20161122
  Transmission Date: 20170207
  Serious: Yes (Hospitalization, Other)
  Sender: FDA-Public Use
  Company Number: US-PFIZER INC-2015364644

PATIENT
  Age: 71 Year
  Sex: Female

DRUGS (15)
  1. PREMARIN [Suspect]
     Active Substance: ESTROGENS, CONJUGATED
     Indication: ATROPHIC VULVOVAGINITIS
     Dosage: 0.5 G, CYCLIC (0.5G 2-3X1 WK)
     Route: 061
     Dates: start: 2010, end: 20160203
  2. CELEBREX [Concomitant]
     Active Substance: CELECOXIB
     Dosage: 400 MG, 1X/DAY (IN MORNING)
  3. CALCIUM [Concomitant]
     Active Substance: CALCIUM
     Indication: BONE DISORDER
     Dosage: 1000 MG, DAILY
  4. METHOTREXATE. [Concomitant]
     Active Substance: METHOTREXATE
     Dosage: 10 MG, WEEKLY (4 TABLET EVERY SATURDAY MORNING)
  5. CENTRUM SILVER [Concomitant]
     Active Substance: MINERALS\VITAMINS
     Dosage: 1 DF, 1X/DAY (1 DAILY MORNING)
  6. REMICADE [Concomitant]
     Active Substance: INFLIXIMAB
     Indication: RHEUMATOID ARTHRITIS
     Dosage: 700 MG, UNK (INFUSION EVERY 8 WEEKS)
  7. OMEPRAZOLE. [Concomitant]
     Active Substance: OMEPRAZOLE
     Dosage: 20 MG, 1X/DAY (EVERY MORNING)
  8. DILTIAZEM. [Concomitant]
     Active Substance: DILTIAZEM
     Dosage: 60 MG, 2X/DAY (1 MORNING + 1 EVENING)
  9. LORATADINE. [Concomitant]
     Active Substance: LORATADINE
     Indication: HYPERSENSITIVITY
     Dosage: 10 MG, DAILY
  10. POTASSIUM GLUCONATE [Concomitant]
     Active Substance: POTASSIUM GLUCONATE
     Dosage: 198 MG, 2X/DAY (4 CAPLETS DAILY- 2 MORNING, 2 LATE EVENING)
  11. TYLENOL EXTRA STRENGTH [Concomitant]
     Active Substance: ACETAMINOPHEN
     Indication: HEADACHE
     Dosage: 500 MG, UNK
  12. VITAMIN D [Concomitant]
     Active Substance: CHOLECALCIFEROL
     Indication: BONE DISORDER
     Dosage: 2000 MG, DAILY
  13. FOLIC ACID. [Concomitant]
     Active Substance: FOLIC ACID
     Dosage: 1 MG, 2X/DAY (1 MORNING + 1 EVENING)
  14. WARFARIN [Concomitant]
     Active Substance: WARFARIN
     Dosage: 2 MG, 1X/DAY (1 DAILY AT 5:00 PM)
  15. BENAZEPRIL [Concomitant]
     Active Substance: BENAZEPRIL HYDROCHLORIDE
     Dosage: 40 MG, 1X/DAY  (MORNING)

REACTIONS (1)
  - Breast cancer [Not Recovered/Not Resolved]

NARRATIVE: CASE EVENT DATE: 20160202
